FAERS Safety Report 12502921 (Version 8)
Quarter: 2018Q1

REPORT INFORMATION
  Report Type: Report from Study
  Country: UA (occurrence: UA)
  Receive Date: 20160628
  Receipt Date: 20180101
  Transmission Date: 20180508
  Serious: Yes (Life-Threatening, Disabling)
  Sender: FDA-Public Use
  Company Number: UA-ROCHE-1644764

PATIENT
  Age: 49 Year
  Sex: Male

DRUGS (23)
  1. KETOROLAC [Concomitant]
     Active Substance: KETOROLAC\KETOROLAC TROMETHAMINE
     Indication: CHEST PAIN
     Route: 065
     Dates: start: 201507
  2. ESSENTIALE (PHOSPHOLIPID) [Concomitant]
     Indication: BLOOD LACTATE DEHYDROGENASE INCREASED
  3. NIMESULIDE [Concomitant]
     Active Substance: NIMESULIDE
     Indication: CHEST PAIN
     Route: 065
     Dates: start: 20150920, end: 20151201
  4. RANITIDINE. [Concomitant]
     Active Substance: RANITIDINE
     Indication: NAUSEA
     Route: 065
     Dates: start: 20151009, end: 20151009
  5. MAGNESIUM ASPARTATE/POTASSIUM ASPARTATE [Concomitant]
     Indication: PROPHYLAXIS
     Dosage: INDICATION: PREVENTION OF ELECTROLYTE IMBALANCE DURING DIURETIC THERAPY
     Route: 065
     Dates: start: 20151009, end: 20151009
  6. KETOROLAC [Concomitant]
     Active Substance: KETOROLAC\KETOROLAC TROMETHAMINE
     Indication: BACK PAIN
  7. NALBUFIN [Concomitant]
     Indication: BACK PAIN
  8. SILYMARIN [Concomitant]
     Active Substance: DIETARY SUPPLEMENT\HERBALS\MILK THISTLE
     Indication: ASPARTATE AMINOTRANSFERASE INCREASED
     Route: 065
     Dates: start: 20151008, end: 20151210
  9. ONDANSETRON [Concomitant]
     Active Substance: ONDANSETRON
     Indication: PREMEDICATION
     Route: 065
     Dates: start: 20151008, end: 20160217
  10. ONDANSETRON [Concomitant]
     Active Substance: ONDANSETRON
     Indication: NAUSEA
     Route: 065
     Dates: start: 20151009, end: 20151009
  11. ONDANSETRON [Concomitant]
     Active Substance: ONDANSETRON
     Indication: VOMITING
  12. ASCORBIC ACID. [Concomitant]
     Active Substance: ASCORBIC ACID
     Indication: PROPHYLAXIS
     Dosage: INDICATION: PREVENTION OF ELECTROLYTE IMBALANCE DURING DIURETIC THERAPY
     Route: 065
     Dates: start: 20151009, end: 20151009
  13. RANITIDINE. [Concomitant]
     Active Substance: RANITIDINE
     Indication: PREMEDICATION
     Route: 065
     Dates: start: 20151008, end: 20160217
  14. RANITIDINE. [Concomitant]
     Active Substance: RANITIDINE
     Indication: VOMITING
  15. NIMESULIDE [Concomitant]
     Active Substance: NIMESULIDE
     Indication: BACK PAIN
  16. CARBOPLATIN. [Suspect]
     Active Substance: CARBOPLATIN
     Indication: NON-SMALL CELL LUNG CANCER STAGE IV
     Dosage: DOSE: AUC 6 MG/ML/MIN?DATE OF MOST RECENT DOSE (876 MG) ON 08/OCT/2015
     Route: 042
     Dates: start: 20151008
  17. PACLITAXEL. [Suspect]
     Active Substance: PACLITAXEL
     Indication: NON-SMALL CELL LUNG CANCER STAGE IV
     Dosage: DATE OF MOST RECENT DOSE (354 MG) ON 08/OCT/2015
     Route: 042
     Dates: start: 20151008
  18. NALBUFIN [Concomitant]
     Indication: CHEST PAIN
     Route: 065
     Dates: start: 20150920, end: 20151013
  19. ESSENTIALE (PHOSPHOLIPID) [Concomitant]
     Indication: ASPARTATE AMINOTRANSFERASE INCREASED
     Route: 065
     Dates: start: 20150930, end: 20151002
  20. ATEZOLIZUMAB. [Suspect]
     Active Substance: ATEZOLIZUMAB
     Indication: NON-SMALL CELL LUNG CANCER STAGE IV
     Dosage: RECEIVED MOST RECENT DOSE ON 08/OCT/2015
     Route: 042
     Dates: start: 20151008
  21. NOVOCAINE [Concomitant]
     Active Substance: PROCAINE
     Indication: ANAESTHESIA
     Dosage: INDICATION: ANESTHESIA DURING PLEURAL PUNCTURE
     Route: 065
     Dates: start: 20151006, end: 20151006
  22. SILYMARIN [Concomitant]
     Active Substance: DIETARY SUPPLEMENT\HERBALS\MILK THISTLE
     Indication: BLOOD LACTATE DEHYDROGENASE INCREASED
  23. DIPHENHYDRAMINE. [Concomitant]
     Active Substance: DIPHENHYDRAMINE
     Indication: PREMEDICATION
     Route: 065
     Dates: start: 20151008, end: 20160217

REACTIONS (6)
  - Urinary retention [Recovered/Resolved]
  - Nausea [Recovered/Resolved]
  - Vomiting [Recovered/Resolved]
  - Pulmonary oedema [Recovered/Resolved]
  - Hallucination [Recovered/Resolved]
  - Hypotension [Recovered/Resolved]

NARRATIVE: CASE EVENT DATE: 20151009
